FAERS Safety Report 6639562-2 (Version None)
Quarter: 2010Q1

REPORT INFORMATION
  Report Type: 
  Country: None (occurrence: None)
  Receive Date: 20100318
  Receipt Date: 20100304
  Transmission Date: 20100710
  Serious: Yes (Hospitalization, Disabling, Other)
  Sender: FDA-Public Use
  Company Number: CA-ELI_LILLY_AND_COMPANY-CA201001005930

PATIENT
  Age: 49 Year
  Sex: Female

DRUGS (25)
  1. FORTEO [Suspect]
     Indication: OSTEOPOROSIS
     Dosage: 20 UG, DAILY (1/D)
     Route: 058
     Dates: start: 20090220, end: 20100218
  2. COUMADIN [Concomitant]
  3. PREVACID [Concomitant]
  4. CLONIDINE [Concomitant]
  5. SULCRATE [Concomitant]
  6. XANAX [Concomitant]
  7. LUPRON [Concomitant]
  8. CYPROHEPTADINE HYDROCHLORIDE [Concomitant]
  9. DURAGESIC-100 [Concomitant]
  10. MORPHINE [Concomitant]
  11. DARVON [Concomitant]
  12. ASPIRIN [Concomitant]
  13. GRAVOL TAB [Concomitant]
  14. VENTOLIN [Concomitant]
  15. SINGULAIR [Concomitant]
  16. SYMBICORT [Concomitant]
  17. ATIVAN [Concomitant]
  18. BUSCOPAN [Concomitant]
  19. LYRICA [Concomitant]
  20. ZOFRAN [Concomitant]
  21. LACTULOSE [Concomitant]
  22. SPIRIVA [Concomitant]
  23. ORPHENADRINE CITRATE [Concomitant]
  24. RHINOCORT [Concomitant]
  25. MIRAPEX [Concomitant]
     Dosage: UNK, UNKNOWN
     Route: 065

REACTIONS (4)
  - ABASIA [None]
  - ARTHROPATHY [None]
  - GAIT DISTURBANCE [None]
  - PAIN IN EXTREMITY [None]
